FAERS Safety Report 17764465 (Version 1)
Quarter: 2020Q2

REPORT INFORMATION
  Report Type: Spontaneous
  Country: CA (occurrence: CA)
  Receive Date: 20200511
  Receipt Date: 20200511
  Transmission Date: 20200714
  Serious: Yes (Other)
  Sender: FDA-Public Use
  Company Number: CA-DRREDDYS-USA/CAN/20/0122702

PATIENT
  Sex: Male

DRUGS (2)
  1. ZOLEDRONIC ACID INJECTION, 5 MG (BASE)/100 ML [Suspect]
     Active Substance: ZOLEDRONIC ACID
     Indication: OSTEOPOROSIS PROPHYLAXIS
     Route: 042
  2. TERAZOSIN [Concomitant]
     Active Substance: TERAZOSIN HYDROCHLORIDE
     Indication: URINARY INCONTINENCE
     Route: 048

REACTIONS (3)
  - Lumbar vertebral fracture [Unknown]
  - Thoracic vertebral fracture [Unknown]
  - Product substitution issue [Unknown]
